FAERS Safety Report 4699546-0 (Version None)
Quarter: 2005Q2

REPORT INFORMATION
  Report Type: 
  Country: None (occurrence: None)
  Receive Date: 20050622
  Receipt Date: 20050617
  Transmission Date: 20051028
  Serious: Yes (Other)
  Sender: FDA-Public Use
  Company Number: DEWYE554904APR05

PATIENT
  Age: 41 Year
  Sex: Female

DRUGS (2)
  1. VENLAFAXINE HCL [Suspect]
     Indication: DEPRESSION
     Dosage: 75 MG PER DAY ORAL
     Route: 048
     Dates: start: 19990101, end: 20050416
  2. LEVOTHYROXINE SODIUM [Concomitant]

REACTIONS (4)
  - BONE MARROW TOXICITY [None]
  - FATIGUE [None]
  - LEUKOPENIA [None]
  - PALLOR [None]
